FAERS Safety Report 6099935-6 (Version None)
Quarter: 2009Q1

REPORT INFORMATION
  Report Type: 
  Country: None (occurrence: None)
  Receive Date: 20090226
  Receipt Date: 20090211
  Transmission Date: 20090719
  Serious: Yes (Other)
  Sender: FDA-Public Use
  Company Number: PHHY2009DK04977

PATIENT
  Age: 35 Year
  Sex: Male

DRUGS (5)
  1. CLOZAPINE [Suspect]
     Dosage: 250 MG, BID;  300 MG, BID
     Dates: start: 20081031
  2. CLOZAPINE [Suspect]
     Dosage: 250 MG, BID;  300 MG, BID
     Dates: start: 20081218
  3. CLOZAPINE [Suspect]
  4. CISORDINOL (CLOPENTHIXOL HYDROCHLORIDE, ZUCLOPENTHIXOL HYDROCHLORIDE) [Concomitant]
  5. EGAZIL (HYOSCYAMINE SULFATE) [Concomitant]

REACTIONS (6)
  - ACCIDENT [None]
  - DYSKINESIA [None]
  - FALL [None]
  - HYPOTONIA [None]
  - SALIVARY HYPERSECRETION [None]
  - SEDATION [None]
